FAERS Safety Report 8933552 (Version 2)
Quarter: 2013Q1

REPORT INFORMATION
  Report Type: Spontaneous
  Country: US (occurrence: US)
  Receive Date: 20121128
  Receipt Date: 20130228
  Transmission Date: 20140127
  Serious: No
  Sender: FDA-Public Use
  Company Number: US-ABBOTT-12P-163-0999871-00

PATIENT
  Sex: Male

DRUGS (3)
  1. ANDROGEL [Suspect]
     Indication: BLOOD TESTOSTERONE DECREASED
     Dates: start: 201209, end: 201210
  2. ANDROGEL [Suspect]
     Dates: start: 201210, end: 201210
  3. ANDROGEL [Suspect]
     Dates: start: 201210, end: 20121022

REACTIONS (2)
  - Headache [Unknown]
  - Nausea [Unknown]
